FAERS Safety Report 20921638 (Version 2)
Quarter: 2022Q2

REPORT INFORMATION
  Report Type: Report from Study
  Country: US (occurrence: US)
  Receive Date: 20220606
  Receipt Date: 20220617
  Transmission Date: 20220720
  Serious: Yes (Death, Hospitalization, Other)
  Sender: FDA-Public Use
  Company Number: US-GILEAD-2022-0583818

PATIENT
  Age: 61 Year
  Sex: Female
  Weight: 110.5 kg

DRUGS (28)
  1. REMDESIVIR [Suspect]
     Active Substance: REMDESIVIR
     Indication: COVID-19
     Dosage: 200 MG, QD
     Route: 042
     Dates: start: 20210909, end: 20210909
  2. REMDESIVIR [Suspect]
     Active Substance: REMDESIVIR
     Dosage: 100 MG, QD
     Route: 042
     Dates: start: 20210910, end: 20210918
  3. CYPROHEPTADINE [Suspect]
     Active Substance: CYPROHEPTADINE
     Indication: COVID-19
     Dosage: 8 MG, Q8H
     Route: 048
     Dates: start: 20210910, end: 20210920
  4. DEXAMETHASONE [Concomitant]
     Active Substance: DEXAMETHASONE
  5. ZOSYN [Concomitant]
     Active Substance: PIPERACILLIN SODIUM\TAZOBACTAM SODIUM
  6. VANCOMYCIN [Concomitant]
     Active Substance: VANCOMYCIN
     Dosage: 1.5 G, Q36HR
     Route: 065
     Dates: start: 20210908
  7. PEPCID [Concomitant]
     Active Substance: FAMOTIDINE
  8. DOLOPHINE [Concomitant]
     Active Substance: METHADONE HYDROCHLORIDE
  9. TYLENOL [Concomitant]
     Active Substance: ACETAMINOPHEN
  10. ULTRAM [Concomitant]
     Active Substance: TRAMADOL HYDROCHLORIDE
  11. ASPIRIN [Concomitant]
     Active Substance: ASPIRIN
  12. SUBLIMAZE [Concomitant]
     Active Substance: FENTANYL CITRATE
  13. ATIVAN [Concomitant]
     Active Substance: LORAZEPAM
  14. ROBINUL [Concomitant]
     Active Substance: GLYCOPYRROLATE
  15. HALDOL [Concomitant]
     Active Substance: HALOPERIDOL
  16. MORPHINE [Concomitant]
     Active Substance: MORPHINE
  17. VERSED [Concomitant]
     Active Substance: MIDAZOLAM HYDROCHLORIDE
  18. KETALAR [Concomitant]
     Active Substance: KETAMINE HYDROCHLORIDE
  19. SODIUM CHLORIDE [Concomitant]
     Active Substance: SODIUM CHLORIDE
  20. LASIX [Concomitant]
     Active Substance: FUROSEMIDE
  21. VANCOCIN [Concomitant]
     Active Substance: VANCOMYCIN HYDROCHLORIDE
  22. ZEMURON [Concomitant]
     Active Substance: ROCURONIUM BROMIDE
  23. VASOSTRICT [Concomitant]
     Active Substance: VASOPRESSIN
  24. LEVOPHED [Concomitant]
     Active Substance: NOREPINEPHRINE BITARTRATE
  25. DIAMOX SEQUELS [Concomitant]
     Active Substance: ACETAZOLAMIDE
  26. DIPRIVAN [Concomitant]
     Active Substance: PROPOFOL
  27. DECADRON [Concomitant]
     Active Substance: DEXAMETHASONE
  28. ACTEMRA [Concomitant]
     Active Substance: TOCILIZUMAB

REACTIONS (1)
  - Pneumonia [Fatal]

NARRATIVE: CASE EVENT DATE: 20210918
